FAERS Safety Report 19618110 (Version 1)
Quarter: 2021Q3

REPORT INFORMATION
  Report Type: Spontaneous
  Country: US (occurrence: US)
  Receive Date: 20210727
  Receipt Date: 20210727
  Transmission Date: 20211014
  Serious: No
  Sender: FDA-Public Use
  Company Number: US-FRESENIUS KABI-FK202107773

PATIENT
  Sex: Female

DRUGS (4)
  1. ABALOPARATIDE [Concomitant]
     Active Substance: ABALOPARATIDE
     Route: 058
  2. FENTANYL. [Suspect]
     Active Substance: FENTANYL
     Indication: ANAESTHESIA PROCEDURE
     Dosage: UNKNOWN
     Route: 065
     Dates: start: 20210622, end: 20210622
  3. ABALOPARATIDE [Concomitant]
     Active Substance: ABALOPARATIDE
     Indication: OSTEOPOROSIS
     Route: 058
     Dates: start: 20210610
  4. PROPOFOL (MANUFACTURER UNKNOWN) [Suspect]
     Active Substance: PROPOFOL
     Indication: ANAESTHESIA PROCEDURE
     Dosage: UNKNOWN
     Route: 065
     Dates: start: 20210622, end: 20210622

REACTIONS (2)
  - Malaise [Unknown]
  - Procedural vomiting [Unknown]

NARRATIVE: CASE EVENT DATE: 20210622
